FAERS Safety Report 9277029 (Version 2)
Quarter: 2013Q2

REPORT INFORMATION
  Report Type: Spontaneous
  Country: GB (occurrence: None)
  Receive Date: 20130501
  Receipt Date: 20130610
  Transmission Date: 20140414
  Serious: Yes (Other)
  Sender: FDA-Public Use
  Company Number: AMAG201300069

PATIENT
  Age: 75 Year
  Sex: Female

DRUGS (1)
  1. RIENSO [Suspect]
     Indication: MICROCYTIC ANAEMIA
     Route: 042
     Dates: start: 20130411, end: 20130411

REACTIONS (5)
  - Jugular vein distension [None]
  - Back pain [None]
  - Blindness transient [None]
  - Hypertension [None]
  - Off label use [None]
